FAERS Safety Report 19941412 (Version 2)
Quarter: 2021Q4

REPORT INFORMATION
  Report Type: Spontaneous
  Country: JP (occurrence: JP)
  Receive Date: 20211012
  Receipt Date: 20211227
  Transmission Date: 20220304
  Serious: Yes (Other)
  Sender: FDA-Public Use
  Company Number: JP-SUN PHARMACEUTICAL INDUSTRIES LTD-2021R1-313494

PATIENT
  Age: 45 Year
  Sex: Male
  Weight: 79.5 kg

DRUGS (3)
  1. CALCITRIOL [Suspect]
     Active Substance: CALCITRIOL
     Indication: Hungry bone syndrome
     Dosage: 0.5 MICROGRAM, DAILY
     Route: 065
  2. CALCIUM LACTATE [Concomitant]
     Active Substance: CALCIUM LACTATE
     Indication: Hungry bone syndrome
     Dosage: 3 GRAM, DAILY
     Route: 065
  3. ETIDRONATE DISODIUM [Concomitant]
     Active Substance: ETIDRONATE DISODIUM
     Indication: Product used for unknown indication
     Dosage: 200 MG/D FOR 2 WEEKS EVERY 4 MONTHS
     Route: 065

REACTIONS (1)
  - Hypercalcaemia [Unknown]
